FAERS Safety Report 15144814 (Version 1)
Quarter: 2018Q3

REPORT INFORMATION
  Report Type: Spontaneous
  Country: US (occurrence: US)
  Receive Date: 20180713
  Receipt Date: 20180713
  Transmission Date: 20181010
  Serious: No
  Sender: FDA-Public Use
  Company Number: US-BEH-2018092691

PATIENT
  Sex: Female
  Weight: 31.29 kg

DRUGS (10)
  1. MULTIVITAMIN                       /00097801/ [Concomitant]
     Active Substance: VITAMINS
  2. PROZAC [Concomitant]
     Active Substance: FLUOXETINE HYDROCHLORIDE
  3. HIZENTRA [Suspect]
     Active Substance: HUMAN IMMUNOGLOBULIN G
     Indication: HEREDITARY ANGIOEDEMA
     Dosage: 3 G, QW
     Route: 058
     Dates: start: 20150626
  4. NORDITROPIN [Concomitant]
     Active Substance: SOMATROPIN
  5. EPIPEN [Concomitant]
     Active Substance: EPINEPHRINE
  6. FOCALIN [Concomitant]
     Active Substance: DEXMETHYLPHENIDATE HYDROCHLORIDE
  7. DIPHENHYDRAMINE. [Concomitant]
     Active Substance: DIPHENHYDRAMINE
  8. LIDOCAINE W/PRILOCAINE [Concomitant]
     Active Substance: LIDOCAINE\PRILOCAINE
  9. MIRALAX [Concomitant]
     Active Substance: POLYETHYLENE GLYCOL 3350
  10. OXCARBAZEPINE. [Concomitant]
     Active Substance: OXCARBAZEPINE

REACTIONS (4)
  - Administration site bruise [Unknown]
  - Administration site erythema [Unknown]
  - Hyperhidrosis [Unknown]
  - Administration site swelling [Unknown]
